FAERS Safety Report 21280281 (Version 6)
Quarter: 2023Q1

REPORT INFORMATION
  Report Type: Spontaneous
  Country: CA (occurrence: CA)
  Receive Date: 20220901
  Receipt Date: 20230308
  Transmission Date: 20230417
  Serious: Yes (Other)
  Sender: FDA-Public Use
  Company Number: CA-PFIZER INC-202200738491

PATIENT
  Age: 72 Year
  Sex: Female
  Weight: 77 kg

DRUGS (7)
  1. ABRILADA [Suspect]
     Active Substance: ADALIMUMAB-AFZB
     Indication: Colitis ulcerative
     Dosage: 160 MG WEEK 0 DOSE (INDUCTION)
     Route: 058
     Dates: start: 20220504
  2. ABRILADA [Suspect]
     Active Substance: ADALIMUMAB-AFZB
     Dosage: 1 DF, 2X/WEEK 160/ 80 MG LOADING PREFILLED PEN, THEN 40 MG Q 2 WEEKS
     Route: 058
     Dates: start: 20220504, end: 202206
  3. ABRILADA [Suspect]
     Active Substance: ADALIMUMAB-AFZB
     Dosage: 1 DF, 2X/WEEK 160/ 80 MG LOADING PREFILLED PEN, THEN 40 MG Q 2 WEEKS
     Route: 058
     Dates: start: 20220504, end: 202206
  4. ABRILADA [Suspect]
     Active Substance: ADALIMUMAB-AFZB
     Dosage: 80 MG WEEK 2 DOSE (INDUCTION)
     Route: 058
     Dates: start: 20220518
  5. ABRILADA [Suspect]
     Active Substance: ADALIMUMAB-AFZB
     Dosage: 40 MG, WEEKLY
     Route: 058
  6. ABRILADA [Suspect]
     Active Substance: ADALIMUMAB-AFZB
     Dosage: 40 MG, WEEKLY PREFILLED PEN
     Route: 058
     Dates: start: 20220629
  7. ABRILADA [Suspect]
     Active Substance: ADALIMUMAB-AFZB
     Dosage: 40 MG, WEEKLY, PREFILLED PEN
     Route: 058
     Dates: start: 20221005

REACTIONS (12)
  - Pyoderma [Recovered/Resolved]
  - Diverticulitis [Recovered/Resolved]
  - Diverticulitis [Not Recovered/Not Resolved]
  - Drug ineffective [Unknown]
  - Off label use [Unknown]
  - Headache [Recovered/Resolved]
  - Malaise [Not Recovered/Not Resolved]
  - Pyrexia [Not Recovered/Not Resolved]
  - Nausea [Not Recovered/Not Resolved]
  - Colitis [Recovered/Resolved]
  - Fatigue [Unknown]
  - Abdominal pain [Not Recovered/Not Resolved]

NARRATIVE: CASE EVENT DATE: 20220101
